FAERS Safety Report 16889064 (Version 1)
Quarter: 2019Q4

REPORT INFORMATION
  Report Type: Spontaneous
  Country: US (occurrence: US)
  Receive Date: 20191007
  Receipt Date: 20191007
  Transmission Date: 20200122
  Serious: No
  Sender: FDA-Public Use
  Company Number: US-GLAXOSMITHKLINE-US2019AMR178062

PATIENT
  Age: 63 Year
  Sex: Female

DRUGS (1)
  1. NUCALA [Suspect]
     Active Substance: MEPOLIZUMAB
     Indication: PRODUCT USED FOR UNKNOWN INDICATION
     Dosage: UNK
     Route: 065
     Dates: start: 20190916

REACTIONS (4)
  - Drug ineffective [Unknown]
  - Headache [Recovered/Resolved]
  - Dizziness [Unknown]
  - Wheezing [Unknown]

NARRATIVE: CASE EVENT DATE: 201909
